FAERS Safety Report 5071506-X (Version None)
Quarter: 2006Q3

REPORT INFORMATION
  Report Type: 
  Country: None (occurrence: None)
  Receive Date: 20060803
  Receipt Date: 20060803
  Transmission Date: 20061208
  Serious: Yes (Hospitalization)
  Sender: FDA-Public Use
  Company Number: None

PATIENT
  Sex: Male
  Weight: 49.8 kg

DRUGS (4)
  1. PEGASPARGASE -ONCASPAR-  750 UNITS/ML  ENZON [Suspect]
     Indication: ACUTE LYMPHOCYTIC LEUKAEMIA
     Dosage: 2500 UNITS/M2  - 3750 UNITS ONCE IM
     Route: 030
     Dates: start: 20060624, end: 20060802
  2. VORICONAZOLE [Concomitant]
  3. ABELCET [Concomitant]
  4. CASPUFUNGAN IV [Concomitant]

REACTIONS (3)
  - PHARYNGEAL OEDEMA [None]
  - RASH [None]
  - SWELLING FACE [None]
